FAERS Safety Report 12233084 (Version 1)
Quarter: 2016Q2

REPORT INFORMATION
  Report Type: Report from Study
  Country: BR (occurrence: BR)
  Receive Date: 20160403
  Receipt Date: 20160403
  Transmission Date: 20160815
  Serious: Yes (Other)
  Sender: FDA-Public Use
  Company Number: BR-ROCHE-1735299

PATIENT
  Sex: Female
  Weight: 62 kg

DRUGS (2)
  1. ACTEMRA [Suspect]
     Active Substance: TOCILIZUMAB
     Indication: RHEUMATOID ARTHRITIS
     Route: 042
  2. CABERGOLINE. [Concomitant]
     Active Substance: CABERGOLINE

REACTIONS (3)
  - Malaise [Unknown]
  - Tachycardia [Recovered/Resolved]
  - Feeling hot [Recovered/Resolved]
